FAERS Safety Report 5245742-3 (Version None)
Quarter: 2007Q1

REPORT INFORMATION
  Report Type: 
  Country: None (occurrence: None)
  Receive Date: 20070223
  Receipt Date: 20070215
  Transmission Date: 20070707
  Serious: Yes (Hospitalization)
  Sender: FDA-Public Use
  Company Number: DE-MERCK-0701DEU00085

PATIENT
  Age: 78 Year
  Sex: Female

DRUGS (3)
  1. COZAAR [Suspect]
     Route: 048
  2. ASPIRIN [Concomitant]
     Route: 048
  3. GABAPENTIN [Concomitant]
     Route: 048

REACTIONS (3)
  - CATHETER RELATED COMPLICATION [None]
  - LYMPHADENOPATHY [None]
  - SUPERIOR VENA CAVAL OCCLUSION [None]
